FAERS Safety Report 26088103 (Version 2)
Quarter: 2025Q4

REPORT INFORMATION
  Report Type: Report from Study
  Country: US (occurrence: US)
  Receive Date: 20251125
  Receipt Date: 20251212
  Transmission Date: 20260118
  Serious: No
  Sender: MALLINCKRODT
  Company Number: US-MALLINCKRODT-MNK202507444

PATIENT
  Age: 3 Month
  Sex: Female
  Weight: 5 kg

DRUGS (2)
  1. CORTICOTROPIN [Suspect]
     Active Substance: CORTICOTROPIN
     Indication: Infantile spasms
     Dosage: UNKNOWN
     Dates: start: 20251114, end: 2025
  2. CORTICOTROPIN [Suspect]
     Active Substance: CORTICOTROPIN
     Dosage: UNKNOWN, TAPERED DOSE
     Dates: start: 2025

REACTIONS (5)
  - Gastrooesophageal reflux disease [Not Recovered/Not Resolved]
  - Cushingoid [Unknown]
  - Dysphonia [Recovering/Resolving]
  - Increased appetite [Unknown]
  - Underdose [Unknown]

NARRATIVE: CASE EVENT DATE: 20250101
